FAERS Safety Report 6993974-6 (Version None)
Quarter: 2010Q3

REPORT INFORMATION
  Report Type: 
  Country: None (occurrence: None)
  Receive Date: 20100917
  Receipt Date: 20100702
  Transmission Date: 20110219
  Serious: No
  Sender: FDA-Public Use
  Company Number: US-ASTRAZENECA-2007UW21476

PATIENT
  Age: 42 Year
  Sex: Male
  Weight: 120.6 kg

DRUGS (10)
  1. SEROQUEL [Suspect]
     Indication: ANXIETY
     Dosage: 25 MG TO 100 MG
     Route: 048
     Dates: start: 20050508, end: 20070101
  2. SEROQUEL [Suspect]
     Indication: DEPRESSION
     Dosage: 25 MG TO 100 MG
     Route: 048
     Dates: start: 20050508, end: 20070101
  3. SEROQUEL [Suspect]
     Indication: NIGHTMARE
     Dosage: 25 MG TO 100 MG
     Route: 048
     Dates: start: 20050508, end: 20070101
  4. SEROQUEL [Suspect]
     Dosage: 25 - 100 MG
     Route: 048
     Dates: start: 20050606, end: 20070801
  5. SEROQUEL [Suspect]
     Dosage: 25 - 100 MG
     Route: 048
     Dates: start: 20050606, end: 20070801
  6. SEROQUEL [Suspect]
     Dosage: 25 - 100 MG
     Route: 048
     Dates: start: 20050606, end: 20070801
  7. VALIUM [Concomitant]
     Dosage: 5 MG, FLUCTUATING
     Route: 048
     Dates: start: 20060925
  8. ZOLOFT [Concomitant]
     Dosage: 25 - 100 MG
     Route: 048
     Dates: start: 20050513
  9. DEPAKOTE [Concomitant]
     Indication: MIGRAINE
     Dosage: 500ER 2 AM AND 3 HS
     Route: 048
     Dates: start: 20050606
  10. LIPITOR [Concomitant]
     Indication: HYPERCHOLESTEROLAEMIA
     Route: 048
     Dates: start: 20050513

REACTIONS (9)
  - BACK DISORDER [None]
  - BLOOD CHOLESTEROL INCREASED [None]
  - BLOOD TRIGLYCERIDES INCREASED [None]
  - DIABETIC COMPLICATION [None]
  - HYPERLIPIDAEMIA [None]
  - LOWER LIMB FRACTURE [None]
  - OBESITY [None]
  - POST-TRAUMATIC STRESS DISORDER [None]
  - TYPE 2 DIABETES MELLITUS [None]
